FAERS Safety Report 4696545-X (Version None)
Quarter: 2005Q2

REPORT INFORMATION
  Report Type: 
  Country: None (occurrence: None)
  Receive Date: 20050620
  Receipt Date: 20050611
  Transmission Date: 20051028
  Serious: Yes (Hospitalization, Other)
  Sender: FDA-Public Use
  Company Number: 2005074612

PATIENT
  Age: 40 Year
  Sex: Male
  Weight: 81.6475 kg

DRUGS (2)
  1. LIPITOR [Suspect]
     Indication: BLOOD CHOLESTEROL INCREASED
     Dosage: 20 MG (20 MG, 1 IN 1 D), ORAL
     Route: 048
     Dates: end: 20020901
  2. ACETYLSALICYLIC ACID SRT [Suspect]
     Indication: ILL-DEFINED DISORDER
     Dosage: 81 MG
     Dates: end: 20030101

REACTIONS (1)
  - MYELODYSPLASTIC SYNDROME [None]
